FAERS Safety Report 7593488-9 (Version None)
Quarter: 2011Q3

REPORT INFORMATION
  Report Type: 
  Country: None (occurrence: None)
  Receive Date: 20110706
  Receipt Date: 20110620
  Transmission Date: 20111222
  Serious: No
  Sender: FDA-Public Use
  Company Number: US-B.I. PHARMACEUTICALS,INC./RIDGEFIELD-2011-BP-15902BP

PATIENT
  Sex: Female

DRUGS (5)
  1. PRADAXA [Suspect]
     Dosage: 150 MG
     Dates: start: 20110601, end: 20110601
  2. COREG [Concomitant]
     Indication: CARDIAC DISORDER
     Dosage: 25 MG
     Route: 048
     Dates: start: 20060101
  3. COREG [Concomitant]
     Indication: HYPERTENSION
  4. PRADAXA [Suspect]
     Indication: ATRIAL FIBRILLATION
     Dosage: 300 MG
     Route: 048
     Dates: start: 20101201, end: 20110601
  5. PRADAXA [Suspect]
     Dosage: 300 MG
     Dates: start: 20110601

REACTIONS (4)
  - DIZZINESS [None]
  - ASTHENIA [None]
  - DYSPEPSIA [None]
  - FALL [None]
